FAERS Safety Report 4961873-7 (Version None)
Quarter: 2006Q1

REPORT INFORMATION
  Report Type: 
  Country: None (occurrence: None)
  Receive Date: 20060329
  Receipt Date: 20060322
  Transmission Date: 20060701
  Serious: Yes (Hospitalization)
  Sender: FDA-Public Use
  Company Number: 223319

PATIENT
  Age: 52 Year
  Sex: Male
  Weight: 102 kg

DRUGS (9)
  1. BEVACIZUMAB  ( BEVACIZUMAB ) PWDR + SOLVENT, INFUSION SOLN, 100MG [Suspect]
     Indication: NEOPLASM MALIGNANT
  2. CISPLATIN [Suspect]
     Indication: NEOPLASM MALIGNANT
     Dosage: 33 MG/M2
  3. ERLOTINIB (ERLOTINIB) TABLET [Suspect]
     Indication: NEOPLASM MALIGNANT
     Dosage: 100 MG, ORAL
     Route: 048
     Dates: start: 20060321
  4. STEROID NOS (STEROID NOS) [Concomitant]
  5. PROTONIX [Concomitant]
  6. OXYCONTIN [Concomitant]
  7. OXYCODONE (OXYCODONE) [Concomitant]
  8. MIRALAX [Concomitant]
  9. ZOFRAN [Concomitant]

REACTIONS (14)
  - BACTERIA URINE IDENTIFIED [None]
  - BAND NEUTROPHIL PERCENTAGE INCREASED [None]
  - BLOOD CHLORIDE DECREASED [None]
  - BLOOD SODIUM DECREASED [None]
  - FACE OEDEMA [None]
  - HAEMOGLOBIN DECREASED [None]
  - LYMPHOCYTE PERCENTAGE DECREASED [None]
  - NEUTROPHIL PERCENTAGE INCREASED [None]
  - PETECHIAE [None]
  - RED BLOOD CELLS URINE POSITIVE [None]
  - URINE ABNORMALITY [None]
  - URTICARIA [None]
  - VASCULITIS [None]
  - WHITE BLOOD CELLS URINE POSITIVE [None]
